FAERS Safety Report 9928240 (Version 1)
Quarter: 2014Q1

REPORT INFORMATION
  Report Type: Spontaneous
  Country: US (occurrence: US)
  Receive Date: 20140227
  Receipt Date: 20140227
  Transmission Date: 20141002
  Serious: Yes (Other)
  Sender: FDA-Public Use
  Company Number: US-JNJFOC-20140212568

PATIENT
  Sex: Female
  Weight: 131.54 kg

DRUGS (2)
  1. XARELTO [Suspect]
     Indication: THROMBOSIS PROPHYLAXIS
     Dosage: WITH DINNER
     Route: 048
     Dates: start: 201309
  2. XARELTO [Suspect]
     Indication: PULMONARY EMBOLISM
     Dosage: WITH DINNER
     Route: 048
     Dates: start: 201309

REACTIONS (4)
  - Retinal detachment [Not Recovered/Not Resolved]
  - Retinal detachment [Recovering/Resolving]
  - Rubber sensitivity [Not Recovered/Not Resolved]
  - Incorrect dose administered [Not Recovered/Not Resolved]
